FAERS Safety Report 18241941 (Version 1)
Quarter: 2020Q3

REPORT INFORMATION
  Report Type: Report from Study
  Country: CN (occurrence: CN)
  Receive Date: 20200908
  Receipt Date: 20200908
  Transmission Date: 20201103
  Serious: Yes (Death)
  Sender: FDA-Public Use
  Company Number: CN-PFIZER INC-2020344941

PATIENT

DRUGS (3)
  1. CYTARABINE. [Suspect]
     Active Substance: CYTARABINE
     Indication: ACUTE MYELOID LEUKAEMIA
     Dosage: 100?150 MG/M^2 INTRAVENOUS DRIP, D1 ~ D7
     Route: 041
  2. HOMOHARRINGTONINE [Suspect]
     Active Substance: OMACETAXINE MEPESUCCINATE
     Indication: ACUTE MYELOID LEUKAEMIA
     Dosage: 2?2.5 MG/M^2 INTRAVENOUS DRIP, D1?D7
     Route: 041
  3. DAUNORUBICIN HCL [Suspect]
     Active Substance: DAUNORUBICIN HYDROCHLORIDE
     Indication: ACUTE MYELOID LEUKAEMIA
     Dosage: 40?45 MG/M^2 INTRAVENOUS DRIP, D1 ~ D3
     Route: 041

REACTIONS (1)
  - Death [Fatal]
